FAERS Safety Report 24341207 (Version 1)
Quarter: 2024Q3

REPORT INFORMATION
  Report Type: Spontaneous
  Country: US (occurrence: US)
  Receive Date: 20240919
  Receipt Date: 20240919
  Transmission Date: 20241017
  Serious: Yes (Hospitalization)
  Sender: CIPLA
  Company Number: US-CIPLA LTD.-2024US09910

PATIENT

DRUGS (5)
  1. ALBUTEROL [Suspect]
     Active Substance: ALBUTEROL
     Indication: Asthma
     Dosage: 2 PUFFS (180 MCG) EVERY 4-6 HOURS (ALREADY WORKING)
     Dates: start: 202407
  2. ALBUTEROL [Suspect]
     Active Substance: ALBUTEROL
     Dosage: 2 PUFFS (180 MCG) EVERY 4-6 HOURS (DEFECTIVE)
     Dates: start: 202407
  3. HYZAAR [Concomitant]
     Active Substance: HYDROCHLOROTHIAZIDE\LOSARTAN POTASSIUM
     Indication: Hypertension
     Dosage: 100-25MG / 1 TABLET A WEEK
     Route: 065
     Dates: start: 2009
  4. METOPROLOL [Concomitant]
     Active Substance: METOPROLOL
     Indication: Hypertension
     Dosage: 100 MILLIGRAM, QD (100MG / 1 TABLET A DAY)
     Route: 065
     Dates: start: 2009
  5. ERGOCALCIFEROL [Concomitant]
     Active Substance: ERGOCALCIFEROL
     Indication: Product used for unknown indication
     Dosage: UNK
     Route: 065

REACTIONS (5)
  - COVID-19 [Not Recovered/Not Resolved]
  - Back pain [Not Recovered/Not Resolved]
  - Device delivery system issue [Unknown]
  - Device malfunction [Unknown]
  - Product substitution issue [Unknown]

NARRATIVE: CASE EVENT DATE: 20240101
